FAERS Safety Report 5707082-5 (Version None)
Quarter: 2008Q2

REPORT INFORMATION
  Report Type: 
  Country: None (occurrence: None)
  Receive Date: 20080414
  Receipt Date: 20080414
  Transmission Date: 20081010
  Serious: Yes (Other)
  Sender: FDA-Public Use
  Company Number: None

PATIENT
  Age: 83 Year
  Sex: Female
  Weight: 54.4316 kg

DRUGS (2)
  1. MELOXICAM [Suspect]
     Indication: NECK PAIN
     Dosage: ONE DAILY PO
     Route: 048
     Dates: start: 20080301, end: 20080304
  2. CYCLOBENAZPRINE [Suspect]
     Indication: NECK PAIN
     Dosage: ONE DAILY PO
     Route: 048
     Dates: start: 20080303, end: 20080304

REACTIONS (1)
  - HYPERSENSITIVITY [None]
